FAERS Safety Report 6083295-0 (Version None)
Quarter: 2009Q1

REPORT INFORMATION
  Report Type: 
  Country: None (occurrence: None)
  Receive Date: 20090213
  Receipt Date: 20090213
  Transmission Date: 20090719
  Serious: Yes (Other)
  Sender: FDA-Public Use
  Company Number: None

PATIENT
  Age: 83 Year
  Sex: Male
  Weight: 79.3795 kg

DRUGS (2)
  1. CETUXIMAB IMCLONE [Suspect]
     Indication: COLON CANCER METASTATIC
     Dosage: 200 MG WEEKLY IV DRIP
     Route: 041
     Dates: start: 20050316, end: 20081224
  2. IRINOTECAN HCL [Suspect]
     Dosage: 180 MG EVERY 2 WEEKS IV DRIP
     Route: 041
     Dates: start: 20050316, end: 20081217

REACTIONS (2)
  - ACUTE LEUKAEMIA [None]
  - PANCYTOPENIA [None]
